FAERS Safety Report 14517392 (Version 1)
Quarter: 2018Q1

REPORT INFORMATION
  Report Type: Spontaneous
  Country: US (occurrence: US)
  Receive Date: 20180212
  Receipt Date: 20180212
  Transmission Date: 20180509
  Serious: No
  Sender: FDA-Public Use
  Company Number: US-009507513-1802USA003247

PATIENT
  Sex: Female

DRUGS (4)
  1. CLARINEX [Suspect]
     Active Substance: DESLORATADINE
     Indication: DYSPNOEA
     Dosage: UNK
  2. CLARINEX-D 12 HOUR [Suspect]
     Active Substance: DESLORATADINE\PSEUDOEPHEDRINE SULFATE
  3. NASONEX [Suspect]
     Active Substance: MOMETASONE FUROATE
     Dosage: UNK
     Route: 055
  4. CLARITIN [Suspect]
     Active Substance: LORATADINE
     Dosage: UNK

REACTIONS (5)
  - Feeling abnormal [Unknown]
  - Skin disorder [Unknown]
  - Mitral valve prolapse [Unknown]
  - Dysbacteriosis [Unknown]
  - Nervousness [Unknown]
